FAERS Safety Report 14142793 (Version 1)
Quarter: 2017Q4

REPORT INFORMATION
  Report Type: Spontaneous
  Country: US (occurrence: None)
  Receive Date: 20171030
  Receipt Date: 20171030
  Transmission Date: 20180321
  Serious: No
  Sender: FDA-Public Use
  Company Number: None

PATIENT
  Age: 49 Year
  Sex: Female
  Weight: 90.72 kg

DRUGS (2)
  1. LEVOTHYROXINE. [Concomitant]
     Active Substance: LEVOTHYROXINE
  2. SYNTHROID [Suspect]
     Active Substance: LEVOTHYROXINE SODIUM
     Indication: HYPOTHYROIDISM
     Dosage: 2-200 MCGS 1 PER DAY, MOUTH
     Route: 048

REACTIONS (8)
  - Dyspnoea [None]
  - Dyspepsia [None]
  - Product quality issue [None]
  - Heart rate decreased [None]
  - Apparent death [None]
  - Chest pain [None]
  - Dizziness [None]
  - Depressed mood [None]

NARRATIVE: CASE EVENT DATE: 2017
